FAERS Safety Report 17936036 (Version 1)
Quarter: 2020Q2

REPORT INFORMATION
  Report Type: Spontaneous
  Country: US (occurrence: US)
  Receive Date: 20200624
  Receipt Date: 20200624
  Transmission Date: 20200714
  Serious: No
  Sender: FDA-Public Use
  Company Number: None

PATIENT
  Age: 67 Year
  Sex: Female
  Weight: 79.2 kg

DRUGS (1)
  1. DEEP SEA PREMIUM SALINE NASAL MOISTURIZING SPRAY [Suspect]
     Active Substance: SODIUM CHLORIDE
     Indication: SINUS DISORDER
     Route: 055

REACTIONS (1)
  - Epistaxis [None]

NARRATIVE: CASE EVENT DATE: 20200501
